FAERS Safety Report 4603192-4 (Version None)
Quarter: 2005Q1

REPORT INFORMATION
  Report Type: 
  Country: None (occurrence: None)
  Receive Date: 20050307
  Receipt Date: 20050221
  Transmission Date: 20050727
  Serious: Yes (Hospitalization)
  Sender: FDA-Public Use
  Company Number: DSA_25993_2005

PATIENT
  Age: 48 Year
  Sex: Male

DRUGS (5)
  1. ENALAPRIL MALEATE AND HYDROCHLOROTHIAZIDE [Suspect]
     Indication: HYPERTENSION
     Dosage: 1 TAB Q DAY PO
     Route: 048
     Dates: start: 20040127, end: 20041117
  2. METFORMIN HCL [Suspect]
     Indication: DIABETES MELLITUS
     Dosage: 2.5 G Q DAY PO
     Route: 048
     Dates: start: 20011116, end: 20041117
  3. METOCLOPRAMIDE HYDROCHLORIDE [Concomitant]
  4. SERTRALINE HCL [Concomitant]
  5. SIMVASTATIN [Concomitant]

REACTIONS (5)
  - ACIDOSIS [None]
  - DIARRHOEA [None]
  - GENERAL PHYSICAL HEALTH DETERIORATION [None]
  - HAEMODIALYSIS [None]
  - RENAL FAILURE [None]
